FAERS Safety Report 22108098 (Version 1)
Quarter: 2023Q1

REPORT INFORMATION
  Report Type: Spontaneous
  Country: US (occurrence: US)
  Receive Date: 20230317
  Receipt Date: 20230317
  Transmission Date: 20230418
  Serious: No
  Sender: FDA-Public Use
  Company Number: US-SANOFI-01530598

PATIENT

DRUGS (1)
  1. XYZAL [Suspect]
     Active Substance: LEVOCETIRIZINE DIHYDROCHLORIDE
     Indication: Hypersensitivity
     Dosage: UNK

REACTIONS (5)
  - Feeling abnormal [Unknown]
  - Hypokinesia [Unknown]
  - Abnormal dreams [Unknown]
  - Dizziness [Unknown]
  - Sleep disorder [Unknown]
